FAERS Safety Report 10648367 (Version 2)
Quarter: 2014Q4

REPORT INFORMATION
  Report Type: Spontaneous
  Country: FR (occurrence: FR)
  Receive Date: 20141212
  Receipt Date: 20141222
  Transmission Date: 20150529
  Serious: Yes (Hospitalization, Disabling, Other)
  Sender: FDA-Public Use
  Company Number: FR-009507513-1412FRA003069

PATIENT
  Age: 60 Year
  Sex: Female

DRUGS (3)
  1. FOSAVANCE [Suspect]
     Active Substance: ALENDRONATE SODIUM\CHOLECALCIFEROL
     Dosage: UNK
     Route: 048
     Dates: end: 2013
  2. FOSAMAX [Suspect]
     Active Substance: ALENDRONATE SODIUM
     Indication: OSTEOPOROSIS POSTMENOPAUSAL
     Dosage: UNK
     Route: 048
     Dates: start: 200411, end: 2006
  3. FOSAVANCE [Suspect]
     Active Substance: ALENDRONATE SODIUM\CHOLECALCIFEROL
     Indication: OSTEOPOROSIS POSTMENOPAUSAL
     Dosage: UNK
     Route: 048
     Dates: start: 2006, end: 2012

REACTIONS (10)
  - Prophylaxis [Unknown]
  - Femur fracture [Unknown]
  - Pain in extremity [Unknown]
  - Ankle fracture [Unknown]
  - Tendonitis [Unknown]
  - Osteosis [Unknown]
  - Osteoma [Unknown]
  - Femur fracture [Recovering/Resolving]
  - Foot fracture [Unknown]
  - Sciatica [Not Recovered/Not Resolved]

NARRATIVE: CASE EVENT DATE: 2005
